FAERS Safety Report 7269736-1 (Version None)
Quarter: 2011Q1

REPORT INFORMATION
  Report Type: 
  Country: None (occurrence: None)
  Receive Date: 20110202
  Receipt Date: 20110125
  Transmission Date: 20110831
  Serious: Yes (Other)
  Sender: FDA-Public Use
  Company Number: GB-GENZYME-POMP-1001306

PATIENT
  Age: 64 Year
  Sex: Male

DRUGS (1)
  1. MYOZYME [Suspect]
     Indication: GLYCOGEN STORAGE DISEASE TYPE II
     Dosage: 1650 MG, Q2W
     Route: 042

REACTIONS (3)
  - DYSGEUSIA [None]
  - PERIPHERAL COLDNESS [None]
  - CYANOSIS [None]
